FAERS Safety Report 9219683 (Version 1)
Quarter: 2013Q2

REPORT INFORMATION
  Report Type: Spontaneous
  Country: US (occurrence: None)
  Receive Date: 20130408
  Receipt Date: 20130408
  Transmission Date: 20140414
  Serious: Yes (Hospitalization)
  Sender: FDA-Public Use
  Company Number: None

PATIENT
  Age: 41 Year
  Sex: Male
  Weight: 90.9 kg

DRUGS (13)
  1. TADALAFIL [Suspect]
     Indication: SARCOIDOSIS
     Route: 048
     Dates: start: 20110927
  2. TADALAFIL [Suspect]
     Indication: PULMONARY HYPERTENSION
     Route: 048
     Dates: start: 20110927
  3. GUIAFENESIN [Concomitant]
  4. AUGMENTIN [Concomitant]
  5. CIPRO [Concomitant]
  6. FLEXERIL [Concomitant]
  7. FOLIC ACID [Concomitant]
  8. HYDROCODONE-ACETAMINOPHEN [Concomitant]
  9. METHOTREXATE [Concomitant]
  10. PRILOSEC [Concomitant]
  11. PREDNISONE [Concomitant]
  12. PROMETHIAZIN CODEINE [Concomitant]
  13. BACTRIM [Concomitant]

REACTIONS (2)
  - Pneumonia [None]
  - Systemic inflammatory response syndrome [None]
